FAERS Safety Report 14406765 (Version 1)
Quarter: 2018Q1

REPORT INFORMATION
  Report Type: Spontaneous
  Country: GR (occurrence: GR)
  Receive Date: 20180118
  Receipt Date: 20180118
  Transmission Date: 20180509
  Serious: Yes (Other)
  Sender: FDA-Public Use
  Company Number: GR-CELGENEUS-GRC-20180103587

PATIENT
  Sex: Male

DRUGS (1)
  1. OTEZLA [Suspect]
     Active Substance: APREMILAST
     Indication: PSORIATIC ARTHROPATHY
     Dosage: DOSE TITRATON ACCORDING TO THE SMPC DOSAGE SCHEME
     Route: 048
     Dates: start: 201707

REACTIONS (2)
  - Diarrhoea [Unknown]
  - Chest pain [Unknown]
